FAERS Safety Report 8243608-8 (Version None)
Quarter: 2012Q1

REPORT INFORMATION
  Report Type: 
  Country: None (occurrence: None)
  Receive Date: 20120329
  Receipt Date: 20120321
  Transmission Date: 20120608
  Serious: Yes (Hospitalization)
  Sender: FDA-Public Use
  Company Number: US-BAYER-2011-087148

PATIENT
  Age: 38 Year
  Sex: Female
  Weight: 102 kg

DRUGS (2)
  1. YAZ [Suspect]
     Indication: CONTRACEPTION
     Dosage: UNK
     Dates: start: 20070601, end: 20070801
  2. LORTAB [Concomitant]
     Indication: PAIN
     Dosage: UNK UNK, PRN
     Route: 048

REACTIONS (7)
  - INJURY [None]
  - DEEP VEIN THROMBOSIS [None]
  - PAIN [None]
  - EMOTIONAL DISTRESS [None]
  - PSYCHIATRIC SYMPTOM [None]
  - ANXIETY [None]
  - PULMONARY EMBOLISM [None]
